FAERS Safety Report 8829976 (Version 2)
Quarter: 2012Q4

REPORT INFORMATION
  Report Type: 
  Country: US (occurrence: US)
  Receive Date: 20121008
  Receipt Date: 20121031
  Transmission Date: 20130627
  Serious: Yes (Other)
  Sender: FDA-Public Use
  Company Number: US-ASTRAZENECA-2012SE74140

PATIENT
  Age: 44 Year
  Sex: Male
  Weight: 79.8 kg

DRUGS (7)
  1. LISINOPRIL [Suspect]
     Route: 048
  2. BRILINTA [Suspect]
     Indication: ACUTE MYOCARDIAL INFARCTION
     Route: 048
     Dates: start: 20120922, end: 20120924
  3. BRILINTA [Suspect]
     Indication: ACUTE CORONARY SYNDROME
     Route: 048
     Dates: start: 20120922, end: 20120924
  4. PLAVIX [Concomitant]
  5. ASA [Concomitant]
     Indication: ACUTE CORONARY SYNDROME
     Route: 048
  6. COREG [Concomitant]
     Indication: ACUTE CORONARY SYNDROME
     Route: 048
  7. LIPITOR [Concomitant]
     Route: 048

REACTIONS (4)
  - Hypersensitivity [Unknown]
  - Rash erythematous [Recovered/Resolved]
  - Pharyngeal oedema [Unknown]
  - Pruritus [Recovered/Resolved]
